FAERS Safety Report 6472138-9 (Version None)
Quarter: 2009Q4

REPORT INFORMATION
  Report Type: 
  Country: None (occurrence: None)
  Receive Date: 20091203
  Receipt Date: 20081029
  Transmission Date: 20100525
  Serious: Yes (Life-Threatening, Other)
  Sender: FDA-Public Use
  Company Number: GB-ELI_LILLY_AND_COMPANY-GB200804003271

PATIENT
  Sex: Female
  Weight: 111 kg

DRUGS (2)
  1. CYMBALTA [Suspect]
     Indication: DEPRESSION
     Dosage: 60 MG, DAILY (1/D)
     Route: 048
     Dates: start: 20080123, end: 20080310
  2. LANSOPRAZOLE [Concomitant]
     Dosage: 15 MG, UNKNOWN
     Route: 048
     Dates: start: 20070518

REACTIONS (1)
  - MALIGNANT HYPERTENSION [None]
